FAERS Safety Report 8476233-4 (Version None)
Quarter: 2012Q2

REPORT INFORMATION
  Report Type: 
  Country: None (occurrence: None)
  Receive Date: 20120628
  Receipt Date: 20120625
  Transmission Date: 20120825
  Serious: Yes (Death, Hospitalization)
  Sender: FDA-Public Use
  Company Number: US-ACTELION-A-US2012-65726

PATIENT

DRUGS (3)
  1. VENTAVIS [Suspect]
     Indication: PULMONARY ARTERIAL HYPERTENSION
     Dosage: UNK
     Route: 055
     Dates: start: 20110329, end: 20120515
  2. ADCIRCA [Concomitant]
  3. LETAIRIS [Concomitant]

REACTIONS (2)
  - DEATH [None]
  - SCLERODERMA [None]
